FAERS Safety Report 6180274-X (Version None)
Quarter: 2009Q2

REPORT INFORMATION
  Report Type: 
  Country: None (occurrence: None)
  Receive Date: 20090501
  Receipt Date: 20090422
  Transmission Date: 20091009
  Serious: Yes (Disabling, Other)
  Sender: FDA-Public Use
  Company Number: CIP09001000

PATIENT
  Age: 84 Year
  Sex: Female

DRUGS (7)
  1. RISEDRONATE SODIUM [Suspect]
     Indication: OSTEOPOROSIS
     Dosage: 2.5 MG DAILY, ORAL
     Route: 048
     Dates: start: 20080908, end: 20090216
  2. ASPIRIN [Concomitant]
  3. CONIEL (BENIDIPINE HYDROCHLORIDE) [Concomitant]
  4. MICARDIS [Concomitant]
  5. CARVEDILOL [Concomitant]
  6. PALGIN /00749301/ (ETIZOLAM) [Concomitant]
  7. FAMOTIDINE [Concomitant]

REACTIONS (5)
  - DENTAL CARIES [None]
  - ORAL TORUS [None]
  - OSTEOSCLEROSIS [None]
  - PERIODONTITIS [None]
  - RESORPTION BONE INCREASED [None]
